FAERS Safety Report 13031961 (Version 1)
Quarter: 2016Q4

REPORT INFORMATION
  Report Type: Spontaneous
  Country: DE (occurrence: DE)
  Receive Date: 20161215
  Receipt Date: 20161215
  Transmission Date: 20170207
  Serious: Yes (Other)
  Sender: FDA-Public Use
  Company Number: PHHY2016DE171278

PATIENT
  Age: 11 Year
  Sex: Male
  Weight: 39 kg

DRUGS (1)
  1. RITALIN LA [Suspect]
     Active Substance: METHYLPHENIDATE HYDROCHLORIDE
     Indication: ATTENTION DEFICIT/HYPERACTIVITY DISORDER
     Dosage: 30 MG, QD
     Route: 048
     Dates: start: 201604

REACTIONS (5)
  - Staring [Recovered/Resolved]
  - Apnoea [Recovered/Resolved]
  - Heart rate irregular [Recovered/Resolved]
  - Muscular weakness [Recovered/Resolved]
  - Depressed level of consciousness [Recovered/Resolved]

NARRATIVE: CASE EVENT DATE: 20161015
